FAERS Safety Report 4813472-5 (Version None)
Quarter: 2005Q4

REPORT INFORMATION
  Report Type: 
  Country: None (occurrence: None)
  Receive Date: 20051028
  Receipt Date: 20050215
  Transmission Date: 20060501
  Serious: No
  Sender: FDA-Public Use
  Company Number: US-GLAXOSMITHKLINE-A0545704A

PATIENT
  Age: 21 Year
  Sex: Female

DRUGS (3)
  1. ADVAIR DISKUS 100/50 [Suspect]
     Indication: ASTHMA
     Route: 055
     Dates: start: 20041029
  2. PREDNISONE [Suspect]
     Route: 065
  3. SOLU-MEDROL [Concomitant]
     Route: 065

REACTIONS (3)
  - ALOPECIA [None]
  - RASH [None]
  - WEIGHT INCREASED [None]
